FAERS Safety Report 9365168 (Version 1)
Quarter: 2013Q2

REPORT INFORMATION
  Report Type: Spontaneous
  Country: US (occurrence: US)
  Receive Date: 20130624
  Receipt Date: 20130624
  Transmission Date: 20140414
  Serious: Yes (Hospitalization)
  Sender: FDA-Public Use
  Company Number: PHHY2013US062739

PATIENT
  Age: 69 Year
  Sex: Female

DRUGS (2)
  1. ATENOLOL [Suspect]
  2. AMLODIPINE [Suspect]

REACTIONS (9)
  - Slow response to stimuli [Recovering/Resolving]
  - Suicide attempt [Unknown]
  - Ventricular fibrillation [Recovering/Resolving]
  - Shock [Recovering/Resolving]
  - Vomiting [Recovering/Resolving]
  - Somnolence [Recovering/Resolving]
  - Hypotension [Recovered/Resolved]
  - Intentional overdose [Unknown]
  - Hypokalaemia [Recovered/Resolved]
